FAERS Safety Report 9154590 (Version 1)
Quarter: 2013Q1

REPORT INFORMATION
  Report Type: Spontaneous
  Country: US (occurrence: US)
  Receive Date: 20130311
  Receipt Date: 20130311
  Transmission Date: 20140127
  Serious: Yes (Other)
  Sender: FDA-Public Use
  Company Number: PHEH2013US005450

PATIENT
  Sex: Female

DRUGS (1)
  1. RECLAST [Suspect]
     Dosage: ONCE A YEAR
     Route: 042
     Dates: start: 20120212

REACTIONS (7)
  - Syncope [Unknown]
  - Abasia [Unknown]
  - Muscle spasms [Unknown]
  - Vomiting [Unknown]
  - Nausea [Unknown]
  - Bone pain [Unknown]
  - Myalgia [Unknown]
